FAERS Safety Report 9198531 (Version 1)
Quarter: 2013Q1

REPORT INFORMATION
  Report Type: Spontaneous
  Country: US (occurrence: None)
  Receive Date: 20120709
  Receipt Date: 20120709
  Transmission Date: 20140127
  Serious: Yes (Other)
  Sender: FDA-Public Use
  Company Number: PHHY2010US92302

PATIENT
  Age: 81 Year
  Sex: Male

DRUGS (5)
  1. GLEEVEC (IMATINIB) UNKNOWN [Suspect]
     Indication: CHRONIC MYELOID LEUKAEMIA
     Route: 048
     Dates: start: 20090126
  2. PRAVACHOL (PRAVASTATIN SODIUM) [Concomitant]
  3. NEXIUM (ESOMEPRAZOLE MAGNESIUM) [Concomitant]
  4. RITALIN (METHYPHENIDATE HYDROCHLORIDE) [Concomitant]
  5. BUPROPION (BUPROPION) [Concomitant]

REACTIONS (1)
  - Pneumonia [None]
